FAERS Safety Report 14034837 (Version 1)
Quarter: 2017Q4

REPORT INFORMATION
  Report Type: Spontaneous
  Country: MX (occurrence: MX)
  Receive Date: 20171003
  Receipt Date: 20171003
  Transmission Date: 20180321
  Serious: Yes (Other)
  Sender: FDA-Public Use
  Company Number: MX-GLAXOSMITHKLINE-MX2017GSK104695

PATIENT
  Sex: Female

DRUGS (3)
  1. DOLOCAM PLUS [Suspect]
     Active Substance: MELOXICAM\METHOCARBAMOL
     Indication: PRODUCT USED FOR UNKNOWN INDICATION
     Dosage: UNK
     Dates: start: 20170627
  2. FLIXOTIDE [Suspect]
     Active Substance: FLUTICASONE PROPIONATE
     Indication: PRODUCT USED FOR UNKNOWN INDICATION
     Dosage: UNK
  3. RELVARE [Suspect]
     Active Substance: FLUTICASONE FUROATE\VILANTEROL TRIFENATATE
     Indication: PRODUCT USED FOR UNKNOWN INDICATION
     Dosage: UNK
     Dates: end: 20170627

REACTIONS (7)
  - Off label use [Recovered/Resolved]
  - Abortion spontaneous [Not Recovered/Not Resolved]
  - Exposure during pregnancy [Recovered/Resolved]
  - Bronchospasm [Recovered/Resolved]
  - Back pain [Recovered/Resolved]
  - Urinary tract infection [Unknown]
  - Arthralgia [Recovered/Resolved]
